FAERS Safety Report 8061170-X (Version None)
Quarter: 2012Q1

REPORT INFORMATION
  Report Type: 
  Country: None (occurrence: None)
  Receive Date: 20120120
  Receipt Date: 20110630
  Transmission Date: 20120608
  Serious: No
  Sender: FDA-Public Use
  Company Number: US-ALLERGAN-1108954US

PATIENT
  Age: 46 Year
  Sex: Female

DRUGS (1)
  1. RESTASIS [Suspect]
     Indication: PREOPERATIVE CARE
     Dosage: 1 GTT, BID
     Dates: start: 20110621

REACTIONS (7)
  - ABNORMAL SENSATION IN EYE [None]
  - EYE PAIN [None]
  - FOREIGN BODY SENSATION IN EYES [None]
  - EYE PRURITUS [None]
  - OCULAR HYPERAEMIA [None]
  - HEADACHE [None]
  - LACRIMATION INCREASED [None]
